FAERS Safety Report 12984030 (Version 1)
Quarter: 2016Q4

REPORT INFORMATION
  Report Type: Spontaneous
  Country: IT (occurrence: IT)
  Receive Date: 20161129
  Receipt Date: 20161129
  Transmission Date: 20170207
  Serious: Yes (Other)
  Sender: FDA-Public Use
  Company Number: IT-MYLANLABS-2016M1051674

PATIENT

DRUGS (4)
  1. OXALIPLATIN. [Suspect]
     Active Substance: OXALIPLATIN
     Indication: COLON CANCER METASTATIC
     Dosage: 94.35 MG, CYCLE
     Route: 042
     Dates: start: 20160526, end: 20161027
  2. FLUOROURACIL. [Suspect]
     Active Substance: FLUOROURACIL
     Dosage: 2664 MG, CYCLE
     Route: 042
     Dates: start: 20160526, end: 20161027
  3. VECTIBIX [Concomitant]
     Active Substance: PANITUMUMAB
     Indication: PRODUCT USED FOR UNKNOWN INDICATION
     Dosage: 283.5 MG
     Route: 042
     Dates: start: 20160526, end: 20161027
  4. FLUOROURACIL. [Suspect]
     Active Substance: FLUOROURACIL
     Indication: COLON CANCER METASTATIC
     Dosage: 444 MG, CYCLE
     Route: 040
     Dates: start: 20160526, end: 20161027

REACTIONS (4)
  - Stomatitis [Not Recovered/Not Resolved]
  - Asthenia [Not Recovered/Not Resolved]
  - Palmar-plantar erythrodysaesthesia syndrome [Not Recovered/Not Resolved]
  - Paraesthesia [Not Recovered/Not Resolved]

NARRATIVE: CASE EVENT DATE: 20161028
